FAERS Safety Report 23715528 (Version 3)
Quarter: 2024Q2

REPORT INFORMATION
  Report Type: Report from Study
  Country: US (occurrence: US)
  Receive Date: 20240407
  Receipt Date: 20240520
  Transmission Date: 20240716
  Serious: Yes (Other)
  Sender: FDA-Public Use
  Company Number: US-ABBVIE-5708134

PATIENT
  Sex: Female

DRUGS (2)
  1. HUMIRA [Suspect]
     Active Substance: ADALIMUMAB
     Indication: Rheumatoid arthritis
     Dosage: FORM STRENGTH: 40 MILLIGRAM, CITRATE FREE
     Route: 058
     Dates: start: 20210804
  2. HUMIRA [Suspect]
     Active Substance: ADALIMUMAB
     Indication: Rheumatoid arthritis
     Dosage: FORM STRENGTH: 40 MG
     Route: 058
     Dates: start: 20190615

REACTIONS (6)
  - Tendonitis [Unknown]
  - Intervertebral disc degeneration [Unknown]
  - Ligamentitis [Unknown]
  - Intervertebral disc protrusion [Recovered/Resolved]
  - Sciatica [Unknown]
  - Swelling [Unknown]

NARRATIVE: CASE EVENT DATE: 20230101
